FAERS Safety Report 8987047 (Version 2)
Quarter: 2013Q3

REPORT INFORMATION
  Report Type: Spontaneous
  Country: US (occurrence: None)
  Receive Date: 20121217
  Receipt Date: 20130723
  Transmission Date: 20140515
  Serious: Yes (Death, Hospitalization)
  Sender: FDA-Public Use
  Company Number: MOZO-1000740

PATIENT
  Age: 46 Year
  Sex: Male
  Weight: 87.5 kg

DRUGS (11)
  1. MOZOBIL [Suspect]
     Indication: GLIOBLASTOMA
     Dosage: 240 MCG/KG, QD, DAYS 1-21, SUBCUTANEOUS
     Route: 058
     Dates: start: 20120719, end: 20120808
  2. BEVACIZUMAB [Suspect]
     Indication: GLIOBLASTOMA
     Dosage: 10 MG/KG, Q2W, DAYS 1 AND 15. INTRAVENOUS
     Route: 042
     Dates: start: 20120719, end: 20120802
  3. COLACE [Concomitant]
  4. DEXAMETHASONE (DEXAMETHASONE) [Concomitant]
  5. DIVALPROEX SODIUM (VALPROATE SEMISODIUM) [Concomitant]
  6. PEPCID (FAMOTIDINE) [Concomitant]
  7. SENNA (SENNA ALEXANDRINA) [Concomitant]
  8. TYLENOL (PARACETAMOL) [Concomitant]
  9. KLONOPIN (CLONAZEPAM) [Concomitant]
  10. LORAZEPAM (LORAZEPAM) [Concomitant]
  11. PHOSPHA NEUTRAL [Concomitant]

REACTIONS (6)
  - Perirectal abscess [None]
  - Anorectal infection [None]
  - Anal fistula [None]
  - Rectal haemorrhage [None]
  - Disease progression [None]
  - Glioblastoma [None]
